FAERS Safety Report 6087479-7 (Version None)
Quarter: 2009Q1

REPORT INFORMATION
  Report Type: 
  Country: None (occurrence: None)
  Receive Date: 20090219
  Receipt Date: 20081113
  Transmission Date: 20090719
  Serious: Yes (Hospitalization)
  Sender: FDA-Public Use
  Company Number: WAES 0811USA02310

PATIENT
  Age: 71 Year
  Sex: Male
  Weight: 105.2345 kg

DRUGS (5)
  1. JANUVIA [Suspect]
     Indication: DIABETES MELLITUS
     Dosage: 100 MG/DAILY/PO
     Route: 048
     Dates: start: 20080902, end: 20080919
  2. LIPITOR [Concomitant]
  3. PLAVIX [Concomitant]
  4. TOPROL-XL [Concomitant]
  5. METFORMIN HCL [Concomitant]

REACTIONS (1)
  - ANGIOEDEMA [None]
